FAERS Safety Report 20963692 (Version 1)
Quarter: 2022Q2

REPORT INFORMATION
  Report Type: Spontaneous
  Country: BE (occurrence: BE)
  Receive Date: 20220615
  Receipt Date: 20220615
  Transmission Date: 20220721
  Serious: Yes (Hospitalization, Other)
  Sender: FDA-Public Use
  Company Number: BE-PFIZER INC-PV202200000577

PATIENT
  Age: 67 Year
  Sex: Male

DRUGS (21)
  1. CLINDAMYCIN [Suspect]
     Active Substance: CLINDAMYCIN
     Indication: Pneumocystis jirovecii infection
     Dosage: UNK
  2. PRIMAQUINE PHOSPHATE [Suspect]
     Active Substance: PRIMAQUINE PHOSPHATE
     Indication: Pneumocystis jirovecii infection
     Dosage: UNK
  3. AZATHIOPRINE [Concomitant]
     Active Substance: AZATHIOPRINE
     Dosage: UNK
  4. EVEROLIMUS [Concomitant]
     Active Substance: EVEROLIMUS
     Dosage: UNK
  5. METHYLPREDNISOLONE [Concomitant]
     Active Substance: METHYLPREDNISOLONE
     Dosage: UNK
  6. AZITHROMYCIN [Concomitant]
     Active Substance: AZITHROMYCIN
     Dosage: 3 TIMES WEEKLY
  7. DAPSONE [Concomitant]
     Active Substance: DAPSONE
     Indication: Antifungal prophylaxis
     Dosage: UNK, 2X/WEEK
  8. SPIRONOLACTONE [Concomitant]
     Active Substance: SPIRONOLACTONE
     Indication: Chronic kidney disease
     Dosage: UNK
  9. BUMETANIDE [Concomitant]
     Active Substance: BUMETANIDE
     Dosage: UNK
  10. BISOPROLOL [Concomitant]
     Active Substance: BISOPROLOL
     Dosage: UNK
  11. ATORVASTATIN [Concomitant]
     Active Substance: ATORVASTATIN
     Dosage: UNK
  12. ENALAPRIL [Concomitant]
     Active Substance: ENALAPRIL
     Dosage: UNK
  13. MOXONIDINE [Concomitant]
     Active Substance: MOXONIDINE
     Dosage: UNK
  14. PRAZOSIN [Concomitant]
     Active Substance: PRAZOSIN
     Dosage: UNK
  15. OMEPRAZOLE [Concomitant]
     Active Substance: OMEPRAZOLE
     Dosage: UNK
  16. TRAZODONE [Concomitant]
     Active Substance: TRAZODONE HYDROCHLORIDE
     Indication: Obstructive sleep apnoea syndrome
     Dosage: UNK, DAILY
  17. ZOLPIDEM [Concomitant]
     Active Substance: ZOLPIDEM TARTRATE
     Indication: Obstructive sleep apnoea syndrome
     Dosage: UNK
  18. GLICLAZIDE [Concomitant]
     Active Substance: GLICLAZIDE
     Indication: Type 2 diabetes mellitus
     Dosage: UNK
  19. MAGNESIUM [Concomitant]
     Active Substance: MAGNESIUM
     Dosage: UNK
  20. CALCIUM [Concomitant]
     Active Substance: CALCIUM
     Dosage: UNK
  21. VITAMIN D NOS [Concomitant]
     Active Substance: VITAMIN D NOS
     Dosage: UNK

REACTIONS (3)
  - Dyspnoea at rest [Recovered/Resolved]
  - Respiratory distress [Recovered/Resolved]
  - Methaemoglobinaemia [Recovered/Resolved]
